FAERS Safety Report 11059012 (Version 1)
Quarter: 2015Q2

REPORT INFORMATION
  Report Type: Spontaneous
  Country: US (occurrence: None)
  Receive Date: 20150420
  Receipt Date: 20150420
  Transmission Date: 20150821
  Serious: No
  Sender: FDA-Public Use
  Company Number: AEGR001141

PATIENT
  Age: 55 Year
  Sex: Female
  Weight: 67.1 kg

DRUGS (1)
  1. JUXTAPID [Suspect]
     Active Substance: LOMITAPIDE MESYLATE
     Indication: TYPE IIA HYPERLIPIDAEMIA
     Route: 048
     Dates: start: 20131011, end: 20131113

REACTIONS (2)
  - Adverse reaction [None]
  - Initial insomnia [None]

NARRATIVE: CASE EVENT DATE: 201412
